FAERS Safety Report 10406237 (Version 2)
Quarter: 2014Q3

REPORT INFORMATION
  Report Type: Spontaneous
  Country: US (occurrence: US)
  Receive Date: 20140825
  Receipt Date: 20140825
  Transmission Date: 20150326
  Serious: Yes (Hospitalization, Disabling, Other)
  Sender: FDA-Public Use
  Company Number: US-009507513-2011SP048232

PATIENT
  Sex: Female
  Weight: 144.7 kg

DRUGS (3)
  1. NUVARING [Suspect]
     Active Substance: ETHINYL ESTRADIOL\ETONOGESTREL
     Dates: start: 20070120, end: 20090505
  2. NUVARING [Suspect]
     Active Substance: ETHINYL ESTRADIOL\ETONOGESTREL
     Dates: start: 20070120, end: 20090505
  3. NUVARING [Suspect]
     Active Substance: ETHINYL ESTRADIOL\ETONOGESTREL
     Indication: CONTRACEPTION
     Dates: start: 20070120, end: 20090505

REACTIONS (14)
  - Hypertension [Unknown]
  - Hyperlipidaemia [Unknown]
  - Coronary artery thrombosis [Recovered/Resolved]
  - Cardiomegaly [Unknown]
  - Acute myocardial infarction [Unknown]
  - Cardiomyopathy [Unknown]
  - Bronchitis [Unknown]
  - Hypokalaemia [Unknown]
  - Sleep apnoea syndrome [Unknown]
  - Cardiac disorder [Unknown]
  - Sinusitis [Unknown]
  - Implantable defibrillator insertion [Unknown]
  - Cardiac failure congestive [Not Recovered/Not Resolved]
  - Asthma [Unknown]

NARRATIVE: CASE EVENT DATE: 20070227
